FAERS Safety Report 7284901-5 (Version None)
Quarter: 2011Q1

REPORT INFORMATION
  Report Type: 
  Country: None (occurrence: None)
  Receive Date: 20110210
  Receipt Date: 20101229
  Transmission Date: 20110831
  Serious: Yes (Other)
  Sender: FDA-Public Use
  Company Number: US-BAYER-201011575NA

PATIENT
  Sex: Female
  Weight: 72.109 kg

DRUGS (4)
  1. YAZ [Suspect]
     Indication: MENSTRUATION IRREGULAR
  2. YASMIN [Suspect]
     Indication: CONTRACEPTION
  3. YAZ [Suspect]
     Indication: CONTRACEPTION
  4. YASMIN [Suspect]
     Indication: MENSTRUATION IRREGULAR

REACTIONS (5)
  - EARLY SATIETY [None]
  - HEPATOBILIARY SCAN ABNORMAL [None]
  - VOMITING [None]
  - ABDOMINAL DISTENSION [None]
  - NAUSEA [None]
